FAERS Safety Report 11060180 (Version 2)
Quarter: 2015Q3

REPORT INFORMATION
  Report Type: Report from Study
  Country: US (occurrence: US)
  Receive Date: 20150423
  Receipt Date: 20150722
  Transmission Date: 20151125
  Serious: No
  Sender: FDA-Public Use
  Company Number: US-AMGEN-USASL2015017757

PATIENT
  Age: 58 Year
  Sex: Male
  Weight: 75.74 kg

DRUGS (3)
  1. DECADRON [Concomitant]
     Active Substance: DEXAMETHASONE
     Indication: PLASMA CELL MYELOMA
     Dosage: 4 UNK, QWK
     Route: 042
     Dates: start: 20140630, end: 20141014
  2. CYTOXAN [Concomitant]
     Active Substance: CYCLOPHOSPHAMIDE
     Indication: PLASMA CELL MYELOMA
     Dosage: 300, EVERY TWO WEEKS
     Route: 042
     Dates: start: 20140630, end: 20141014
  3. KYPROLIS [Suspect]
     Active Substance: CARFILZOMIB
     Indication: PLASMA CELL MYELOMA
     Dosage: 54 MG, ONCE A WEEK
     Route: 042
     Dates: start: 20140630, end: 20141014

REACTIONS (5)
  - Mental status changes [Unknown]
  - Movement disorder [Unknown]
  - Dizziness [Recovered/Resolved]
  - Fall [Unknown]
  - Confusional state [Recovered/Resolved]

NARRATIVE: CASE EVENT DATE: 20140727
